FAERS Safety Report 24609206 (Version 3)
Quarter: 2024Q4

REPORT INFORMATION
  Report Type: Spontaneous
  Country: AT (occurrence: AT)
  Receive Date: 20241112
  Receipt Date: 20241213
  Transmission Date: 20250114
  Serious: No
  Sender: PFIZER
  Company Number: AT-PFIZER INC-PV202400144963

PATIENT
  Sex: Female

DRUGS (1)
  1. GENOTROPIN [Suspect]
     Active Substance: SOMATROPIN
     Dosage: UNK

REACTIONS (5)
  - Device issue [Unknown]
  - Device breakage [Unknown]
  - Device dispensing error [Unknown]
  - Drug dose omission by device [Unknown]
  - Expired device used [Unknown]
